FAERS Safety Report 16841707 (Version 1)
Quarter: 2019Q3

REPORT INFORMATION
  Report Type: Report from Study
  Country: JP (occurrence: JP)
  Receive Date: 20190923
  Receipt Date: 20190923
  Transmission Date: 20191005
  Serious: Yes (Death, Other)
  Sender: FDA-Public Use
  Company Number: JP-009507513-1909JPN001862J

PATIENT
  Age: 59 Year
  Sex: Male
  Weight: 58 kg

DRUGS (4)
  1. VICCLOX [Concomitant]
     Active Substance: ACYCLOVIR SODIUM
     Indication: PROPHYLAXIS
     Dosage: 200 MILLIGRAM, 5 TIMES PER DAY
     Route: 048
     Dates: end: 20190110
  2. VFEND [Concomitant]
     Active Substance: VORICONAZOLE
     Indication: PROPHYLAXIS
     Dosage: 200 MILLIGRAM, BID
     Route: 048
     Dates: end: 20190504
  3. LETERMOVIR [Suspect]
     Active Substance: LETERMOVIR
     Indication: ANTIVIRAL PROPHYLAXIS
     Dosage: 480 MILLIGRAM, QD
     Route: 048
     Dates: start: 20181211, end: 20190228
  4. PROGRAF [Concomitant]
     Active Substance: TACROLIMUS\TACROLIMUS ANHYDROUS
     Indication: PROPHYLAXIS
     Dosage: UNK
     Route: 051
     Dates: end: 20190204

REACTIONS (5)
  - Chronic graft versus host disease [Unknown]
  - Death [Fatal]
  - Acute myeloid leukaemia recurrent [Unknown]
  - Acute graft versus host disease in skin [Unknown]
  - Adverse event [Unknown]

NARRATIVE: CASE EVENT DATE: 20181231
